FAERS Safety Report 6115447-5 (Version None)
Quarter: 2009Q1

REPORT INFORMATION
  Report Type: 
  Country: None (occurrence: None)
  Receive Date: 20090313
  Receipt Date: 20090309
  Transmission Date: 20090719
  Serious: Yes (Hospitalization)
  Sender: FDA-Public Use
  Company Number: FI-SANOFI-SYNTHELABO-A01200902493

PATIENT
  Sex: Male

DRUGS (7)
  1. LAXOBERON [Concomitant]
     Dosage: UNK
     Route: 065
  2. LISIPRIL [Concomitant]
     Dosage: UNK
     Route: 065
     Dates: start: 20081207
  3. SOMAC [Concomitant]
     Dosage: UNK
     Route: 065
     Dates: start: 20080213
  4. ORADEXON TAB [Suspect]
     Indication: DRUG USE FOR UNKNOWN INDICATION
     Dosage: 10 MG
     Route: 042
     Dates: start: 20090219, end: 20090219
  5. KYTRIL [Suspect]
     Indication: DRUG USE FOR UNKNOWN INDICATION
     Dosage: 3 MG
     Route: 042
     Dates: start: 20090219, end: 20090219
  6. OXALIPLATIN [Suspect]
     Indication: RECTAL CANCER
     Dosage: 260 MG
     Route: 042
     Dates: start: 20090219, end: 20090219
  7. AVASTIN [Suspect]
     Indication: RECTAL CANCER
     Dosage: 540 MG
     Route: 042
     Dates: start: 20090219, end: 20090219

REACTIONS (1)
  - LARYNGOSPASM [None]
